FAERS Safety Report 4415281-8 (Version None)
Quarter: 2004Q3

REPORT INFORMATION
  Report Type: 
  Country: None (occurrence: None)
  Receive Date: 20040730
  Receipt Date: 20040716
  Transmission Date: 20050211
  Serious: Yes (Hospitalization)
  Sender: FDA-Public Use
  Company Number: 04P-056-0267293-00

PATIENT
  Age: 67 Year
  Sex: Male

DRUGS (8)
  1. DEPAKINE TABLETS (SODIUM VALPROATE) (SODIUM VALPROATE) (SODIUM VALPROA [Suspect]
     Indication: CEREBROVASCULAR ACCIDENT
     Dosage: 3000 MG, 1 IN 1 D, PER ORAL
     Route: 048
     Dates: start: 19891015
  2. DEPAKINE TABLETS (SODIUM VALPROATE) (SODIUM VALPROATE) (SODIUM VALPROA [Suspect]
     Indication: EPILEPSY
     Dosage: 3000 MG, 1 IN 1 D, PER ORAL
     Route: 048
     Dates: start: 19891015
  3. CARBAMAZEPINE [Suspect]
     Indication: CEREBROVASCULAR ACCIDENT
     Dosage: 600 MG, 1 IN 1 D, PER ORAL
     Route: 048
     Dates: start: 19891015
  4. CARBAMAZEPINE [Suspect]
     Indication: EPILEPSY
     Dosage: 600 MG, 1 IN 1 D, PER ORAL
     Route: 048
     Dates: start: 19891015
  5. CLOPIDOGREL BISULFATE [Concomitant]
  6. ACETYLSALICYLATE LYSINE [Concomitant]
  7. DANTROLENE SODIUM [Concomitant]
  8. TRAMADOL HYDROCHLORIDE [Concomitant]

REACTIONS (11)
  - ANAEMIA [None]
  - BLOOD FOLATE DECREASED [None]
  - BONE MARROW DISORDER [None]
  - HYPERHIDROSIS [None]
  - HYPOTENSION [None]
  - LUNG DISORDER [None]
  - PLEURAL EFFUSION [None]
  - PNEUMONIA STREPTOCOCCAL [None]
  - PNEUMOTHORAX [None]
  - THROMBOCYTOPENIA [None]
  - VISION BLURRED [None]
